FAERS Safety Report 20053467 (Version 1)
Quarter: 2021Q4

REPORT INFORMATION
  Report Type: Spontaneous
  Country: PT (occurrence: PT)
  Receive Date: 20211110
  Receipt Date: 20211110
  Transmission Date: 20220303
  Serious: Yes (Life-Threatening, Hospitalization)
  Sender: FDA-Public Use
  Company Number: PT-TEVA-2021-PT-1976860

PATIENT
  Age: 37 Year
  Sex: Female

DRUGS (3)
  1. CYCLOBENZAPRINE [Suspect]
     Active Substance: CYCLOBENZAPRINE
     Dosage: 10 TABLETS OF CYCLOBENZAPRINE VOLUNTARY INTAKE.
     Route: 048
  2. NAPROXEN [Suspect]
     Active Substance: NAPROXEN
     Dosage: 20 TABLETS OF NAPROXEN VOLUNTARY INTAKE.
     Route: 048
  3. DIETARY SUPPLEMENT [Suspect]
     Active Substance: DIETARY SUPPLEMENT
     Dosage: 30 TABLETS OF ALANERV VOLUNTARY INTAKE.
     Route: 048

REACTIONS (4)
  - Thrombocytopenia [Not Recovered/Not Resolved]
  - Toxicity to various agents [Recovered/Resolved]
  - Serotonin syndrome [Recovered/Resolved]
  - Autoimmune haemolytic anaemia [Not Recovered/Not Resolved]
